FAERS Safety Report 4558831-3 (Version None)
Quarter: 2005Q1

REPORT INFORMATION
  Report Type: 
  Country: None (occurrence: None)
  Receive Date: 20050121
  Receipt Date: 20050113
  Transmission Date: 20050727
  Serious: Yes (Life-Threatening)
  Sender: FDA-Public Use
  Company Number: 2005JP000062

PATIENT
  Age: 59 Year
  Sex: Male

DRUGS (6)
  1. CEFAZOLIN [Suspect]
     Indication: INFECTION PROPHYLAXIS
     Dosage: 12G PER DAY
     Route: 042
     Dates: start: 20050104, end: 20050107
  2. MYONAL [Concomitant]
     Route: 065
  3. RENIVACE [Concomitant]
     Route: 065
  4. BISOPROLOL FUMARATE [Concomitant]
     Route: 065
  5. SEPAMIT [Concomitant]
     Route: 065
  6. DEPAS [Concomitant]
     Route: 065

REACTIONS (1)
  - SHOCK [None]
